FAERS Safety Report 16148630 (Version 1)
Quarter: 2019Q2

REPORT INFORMATION
  Report Type: Spontaneous
  Country: FR (occurrence: FR)
  Receive Date: 20190402
  Receipt Date: 20190402
  Transmission Date: 20190711
  Serious: Yes (Hospitalization)
  Sender: FDA-Public Use
  Company Number: FR-TEVA-2019-FR-1032039

PATIENT
  Age: 54 Year
  Sex: Female
  Weight: 86 kg

DRUGS (3)
  1. AMOXICILLIN. [Suspect]
     Active Substance: AMOXICILLIN
     Route: 048
     Dates: start: 20190204, end: 20190210
  2. LARIAM [Suspect]
     Active Substance: MEFLOQUINE HYDROCHLORIDE
     Indication: MALARIA PROPHYLAXIS
     Dosage: SCORED
     Dates: start: 20190117, end: 20190210
  3. BIPROFENID [Suspect]
     Active Substance: KETOPROFEN
     Route: 048
     Dates: start: 20190204, end: 20190210

REACTIONS (2)
  - Vascular purpura [Recovering/Resolving]
  - Transaminases [Recovering/Resolving]

NARRATIVE: CASE EVENT DATE: 20190206
